FAERS Safety Report 7395991-3 (Version None)
Quarter: 2011Q2

REPORT INFORMATION
  Report Type: 
  Country: None (occurrence: None)
  Receive Date: 20110406
  Receipt Date: 20110324
  Transmission Date: 20111010
  Serious: Yes (Hospitalization)
  Sender: FDA-Public Use
  Company Number: US-SHIRE-SPV1-2011-00484

PATIENT
  Sex: Female
  Weight: 86.168 kg

DRUGS (12)
  1. OXYBUTYNIN [Concomitant]
     Indication: HYPERTONIC BLADDER
     Dosage: 5 MG, 2X/DAY:BID
     Route: 048
     Dates: start: 20100101
  2. IBUPROFEN [Concomitant]
     Indication: BACK PAIN
     Dosage: UNK, AS REQ'D
     Route: 048
     Dates: start: 20070101
  3. BUSPAR [Concomitant]
     Indication: POST-TRAUMATIC STRESS DISORDER
     Dosage: 20 MG, 1X/DAY:QD (2) 10MG DAILY
     Route: 048
     Dates: start: 20100101
  4. LEVOTHROID [Concomitant]
     Indication: HYPOTHYROIDISM
     Dosage: 100 ?G, 1X/DAY:QD
     Route: 048
     Dates: start: 20050101
  5. RISPERIDONE [Concomitant]
     Indication: POST-TRAUMATIC STRESS DISORDER
     Dosage: 2 MG, 1X/DAY:QD
     Route: 048
     Dates: start: 20100101
  6. ULTRAM [Concomitant]
     Indication: BACK PAIN
     Dosage: TWO 50MG TABLETS, 4X/DAY:QID
     Route: 048
  7. PREMARIN [Concomitant]
     Indication: HORMONE REPLACEMENT THERAPY
     Dosage: 626 MG, 1X/DAY:QD
     Route: 048
     Dates: start: 19980101
  8. CYMBALTA [Concomitant]
     Indication: DEPRESSION
     Dosage: 6 MG, 1X/DAY:QD
     Route: 048
     Dates: start: 20090101
  9. ADDERALL XR 10 [Suspect]
     Indication: NARCOLEPSY
     Dosage: 20 MG, 1X/DAY:QD (3X20MG DAILY)
     Route: 048
     Dates: start: 20100101
  10. ALELOSTINE [Concomitant]
     Indication: HYPERSENSITIVITY
     Dosage: UNK, AS REQ'D
     Route: 045
  11. ZYRTEC [Concomitant]
     Indication: HYPERSENSITIVITY
     Dosage: 10 MG, 1X/DAY:QD
     Route: 048
  12. FLONASE [Concomitant]
     Indication: HYPERSENSITIVITY
     Dosage: 50 ?G, 2X/DAY:BID
     Route: 045

REACTIONS (6)
  - DRUG INEFFECTIVE FOR UNAPPROVED INDICATION [None]
  - OVERDOSE [None]
  - PRURITUS [None]
  - PRODUCT QUALITY ISSUE [None]
  - INTERVERTEBRAL DISC PROTRUSION [None]
  - OFF LABEL USE [None]
